FAERS Safety Report 18968887 (Version 9)
Quarter: 2023Q4

REPORT INFORMATION
  Report Type: Spontaneous
  Country: US (occurrence: US)
  Receive Date: 20210304
  Receipt Date: 20231215
  Transmission Date: 20240109
  Serious: Yes (Hospitalization)
  Sender: FDA-Public Use
  Company Number: US-PFIZER INC-2021201312

PATIENT
  Age: 76 Year
  Sex: Female
  Weight: 63.492 kg

DRUGS (3)
  1. BRAFTOVI [Suspect]
     Active Substance: ENCORAFENIB
     Indication: Colon cancer
     Dosage: 150 MG, 1X/DAY (TWO NIGHTLY 75MG/ 2 CAPSULES DAILY)
     Route: 048
  2. BRAFTOVI [Suspect]
     Active Substance: ENCORAFENIB
     Dosage: 150 MG, DAILY (TAKE 2 75MG CAPSULES DAILY, WITH OR WITHOUT FOOD, TOTAL DAILY DOSE 150 MG)
     Route: 048
  3. LOMOTIL [Concomitant]
     Active Substance: ATROPINE SULFATE\DIPHENOXYLATE HYDROCHLORIDE
     Indication: Diarrhoea
     Dosage: 2.5 MG, AS NEEDED (4 TIMES A DAY AS NEEDED)
     Route: 048

REACTIONS (2)
  - Pyrexia [Recovered/Resolved]
  - Malaise [Recovering/Resolving]
